FAERS Safety Report 7473337-X (Version None)
Quarter: 2011Q2

REPORT INFORMATION
  Report Type: 
  Country: None (occurrence: None)
  Receive Date: 20110511
  Receipt Date: 20110504
  Transmission Date: 20111010
  Serious: Yes (Hospitalization)
  Sender: FDA-Public Use
  Company Number: BR-US-EMD SERONO, INC.-7057941

PATIENT
  Sex: Male

DRUGS (5)
  1. BACLOFEN [Concomitant]
  2. FLUOXETINE [Concomitant]
  3. REBIF [Suspect]
     Indication: RELAPSING-REMITTING MULTIPLE SCLEROSIS
     Dates: start: 19990401
  4. MANTIDAN [Concomitant]
  5. RETEMIC [Concomitant]

REACTIONS (5)
  - VIITH NERVE PARALYSIS [None]
  - MUSCULAR WEAKNESS [None]
  - MICTURITION URGENCY [None]
  - EMOTIONAL DISORDER [None]
  - GAIT DISTURBANCE [None]
